FAERS Safety Report 24431034 (Version 3)
Quarter: 2024Q4

REPORT INFORMATION
  Report Type: Spontaneous
  Country: JP (occurrence: JP)
  Receive Date: 20241014
  Receipt Date: 20241104
  Transmission Date: 20250114
  Serious: Yes (Death)
  Sender: CHEPLAPHARM
  Company Number: JP-CHEPLA-2024012733

PATIENT
  Age: 81 Year
  Sex: Female

DRUGS (4)
  1. GANCICLOVIR [Suspect]
     Active Substance: GANCICLOVIR
     Indication: Cytomegalovirus enterocolitis
     Dosage: DENOSINE FOR I.V.INFUSION. ROA: IV DRIP.
     Route: 042
  2. TACROLIMUS [Suspect]
     Active Substance: TACROLIMUS
  3. PREDNISOLONE [Concomitant]
     Active Substance: PREDNISOLONE
  4. CLONAZEPAM [Concomitant]
     Active Substance: CLONAZEPAM

REACTIONS (3)
  - Colitis ulcerative [Fatal]
  - Cerebral haemorrhage [Fatal]
  - Off label use [Unknown]
